FAERS Safety Report 5337579-1 (Version None)
Quarter: 2007Q2

REPORT INFORMATION
  Report Type: 
  Country: None (occurrence: None)
  Receive Date: 20070529
  Receipt Date: 20070523
  Transmission Date: 20071010
  Serious: Yes (Disabling)
  Sender: FDA-Public Use
  Company Number: US-MERCK-0705USA04236

PATIENT

DRUGS (1)
  1. VYTORIN [Suspect]
     Indication: HIGH DENSITY LIPOPROTEIN DECREASED
     Route: 048
     Dates: start: 20070401, end: 20070101

REACTIONS (2)
  - CHROMATURIA [None]
  - MYALGIA [None]
